FAERS Safety Report 6832801-4 (Version None)
Quarter: 2010Q3

REPORT INFORMATION
  Report Type: 
  Country: None (occurrence: None)
  Receive Date: 20100712
  Receipt Date: 20070321
  Transmission Date: 20110219
  Serious: No
  Sender: FDA-Public Use
  Company Number: US-PFIZER INC-2007024129

PATIENT
  Sex: Male
  Weight: 122.47 kg

DRUGS (1)
  1. CHANTIX [Suspect]
     Indication: NICOTINE DEPENDENCE
     Dates: start: 20070310

REACTIONS (3)
  - ABNORMAL FAECES [None]
  - HEADACHE [None]
  - VIRAL INFECTION [None]
